FAERS Safety Report 17301824 (Version 1)
Quarter: 2020Q1

REPORT INFORMATION
  Report Type: Other
  Country: CA (occurrence: CA)
  Receive Date: 20200122
  Receipt Date: 20200122
  Transmission Date: 20200409
  Serious: Yes (Other)
  Sender: FDA-Public Use
  Company Number: CA-BECTON DICKINSON-2020BDN00012

PATIENT
  Age: 42 Year
  Sex: Female
  Weight: 81 kg

DRUGS (21)
  1. ACTEMRA [Suspect]
     Active Substance: TOCILIZUMAB
  2. SIMPONI [Suspect]
     Active Substance: GOLIMUMAB
     Route: 058
  3. CHLORHEXIDINE GLUCONATE. [Suspect]
     Active Substance: CHLORHEXIDINE GLUCONATE
  4. CIMZIA [Suspect]
     Active Substance: CERTOLIZUMAB PEGOL
     Dosage: 200 MG
     Route: 058
  5. PANTOPRAZOLE [Concomitant]
     Active Substance: PANTOPRAZOLE
  6. VENTOLINE [Concomitant]
     Active Substance: ALBUTEROL
  7. CETIRIZINE HYDROCHLORIDE. [Concomitant]
     Active Substance: CETIRIZINE HYDROCHLORIDE
  8. VITAMIN C [Concomitant]
     Active Substance: ASCORBIC ACID
  9. ENBREL [Suspect]
     Active Substance: ETANERCEPT
     Indication: RHEUMATOID ARTHRITIS
     Route: 058
  10. COENZYME Q10 [Concomitant]
     Active Substance: UBIDECARENONE
  11. HYDROXYCHLOROQUINE [Concomitant]
     Active Substance: HYDROXYCHLOROQUINE
  12. ORENCIA [Suspect]
     Active Substance: ABATACEPT
  13. IBUPROFEN. [Concomitant]
     Active Substance: IBUPROFEN
  14. PREDNISONE. [Concomitant]
     Active Substance: PREDNISONE
  15. TYLENOL [Concomitant]
     Active Substance: ACETAMINOPHEN
  16. ARAVA [Suspect]
     Active Substance: LEFLUNOMIDE
  17. CIMZIA [Suspect]
     Active Substance: CERTOLIZUMAB PEGOL
     Indication: RHEUMATOID ARTHRITIS
     Dosage: 400 MG
     Route: 058
  18. METHOTREXATE. [Suspect]
     Active Substance: METHOTREXATE
  19. DOCOSAHEXAENOIC ACID [Concomitant]
     Active Substance: DOCONEXENT
  20. PERCOCET [Suspect]
     Active Substance: ACETAMINOPHEN\OXYCODONE HYDROCHLORIDE
  21. APO-ZOPICLONE [Concomitant]
     Active Substance: ZOPICLONE

REACTIONS (21)
  - Rash [Unknown]
  - Lower respiratory tract infection [Unknown]
  - Night sweats [Unknown]
  - Peripheral swelling [Unknown]
  - Sinusitis [Unknown]
  - Ear pain [Unknown]
  - Respiratory disorder [Unknown]
  - Urticaria [Unknown]
  - Vomiting [Unknown]
  - Body temperature increased [Unknown]
  - Insomnia [Unknown]
  - Off label use [Unknown]
  - Asthenia [Unknown]
  - Back pain [Unknown]
  - Diarrhoea [Unknown]
  - Abdominal pain upper [Unknown]
  - Joint swelling [Unknown]
  - Pain [Unknown]
  - Pruritus [Unknown]
  - Headache [Unknown]
  - Muscle spasticity [Unknown]
